FAERS Safety Report 8073011-5 (Version None)
Quarter: 2011Q4

REPORT INFORMATION
  Report Type: 
  Country: None (occurrence: None)
  Receive Date: 20111221
  Receipt Date: 20101217
  Transmission Date: 20120403
  Serious: Yes (Other)
  Sender: FDA-Public Use
  Company Number: PHHY2008US37001

PATIENT
  Age: 3 Month
  Sex: Female
  Weight: 15.3 kg

DRUGS (1)
  1. EXJADE [Suspect]
     Indication: IRON OVERLOAD
     Dosage: 375 MG, QD, ORAL
     Route: 048
     Dates: start: 20081103

REACTIONS (4)
  - SKIN WARM [None]
  - RASH GENERALISED [None]
  - PYREXIA [None]
  - RASH ERYTHEMATOUS [None]
